FAERS Safety Report 14608374 (Version 1)
Quarter: 2018Q1

REPORT INFORMATION
  Report Type: Spontaneous
  Country: FI (occurrence: FI)
  Receive Date: 20180307
  Receipt Date: 20180307
  Transmission Date: 20180509
  Serious: Yes (Hospitalization)
  Sender: FDA-Public Use
  Company Number: FI-CONCORDIA PHARMACEUTICALS INC.-E2B_00010433

PATIENT
  Sex: Female

DRUGS (2)
  1. LOSATRIX [Concomitant]
     Active Substance: LOSARTAN POTASSIUM
     Dosage: 100,MG,DAILY
  2. PREDNISOLONE. [Suspect]
     Active Substance: PREDNISOLONE
     Dosage: 4,DF,DAILY
     Route: 047
     Dates: start: 20171001, end: 20171001

REACTIONS (4)
  - Extrasystoles [Unknown]
  - Blood pressure increased [Unknown]
  - Arrhythmia [Unknown]
  - Cardiac failure [Unknown]

NARRATIVE: CASE EVENT DATE: 20171001
